FAERS Safety Report 19359414 (Version 2)
Quarter: 2021Q2

REPORT INFORMATION
  Report Type: Report from Study
  Country: US (occurrence: US)
  Receive Date: 20210601
  Receipt Date: 20210628
  Transmission Date: 20210717
  Serious: Yes (Other)
  Sender: FDA-Public Use
  Company Number: US-BIOVITRUM-2020US6978

PATIENT
  Sex: Female

DRUGS (1)
  1. KINERET [Suspect]
     Active Substance: ANAKINRA
     Indication: RHEUMATOID ARTHRITIS
     Route: 058
     Dates: start: 20201113

REACTIONS (11)
  - Renal impairment [Unknown]
  - Injection site rash [Unknown]
  - Product dose omission issue [Unknown]
  - Peripheral swelling [Unknown]
  - Injection site pruritus [Unknown]
  - Arthritis [Unknown]
  - Product contamination [Unknown]
  - Flushing [Unknown]
  - Blood uric acid increased [Unknown]
  - Urinary tract infection [Unknown]
  - Injection site pain [Unknown]
